FAERS Safety Report 13576434 (Version 2)
Quarter: 2017Q2

REPORT INFORMATION
  Report Type: Spontaneous
  Country: NL (occurrence: NL)
  Receive Date: 20170524
  Receipt Date: 20170525
  Transmission Date: 20170830
  Serious: Yes (Other)
  Sender: FDA-Public Use
  Company Number: NL-GLENMARK PHARMACEUTICALS-2017GMK027581

PATIENT
  Age: 51 Year
  Sex: Male

DRUGS (7)
  1. RILUZOLE. [Concomitant]
     Active Substance: RILUZOLE
     Indication: AMYOTROPHIC LATERAL SCLEROSIS
     Dosage: 100 MG, OD
     Route: 065
  2. BENZYLPENICILLIN [Concomitant]
     Active Substance: PENICILLIN G
     Dosage: 3 MILLION UNITS ON DAY 2; 8-HOUR CONTINUOUS
     Route: 065
  3. BENZYLPENICILLIN [Concomitant]
     Active Substance: PENICILLIN G
     Dosage: 20 MILLION UNITS ON DAY 5 TO 21; 8-HOUR CONTINUOUS INFUSION
     Route: 065
  4. BENZYLPENICILLIN [Concomitant]
     Active Substance: PENICILLIN G
     Dosage: 10 MILLION UNITS ON DAY 4; 8-HOUR CONTINUOUS INFUSION
     Route: 065
  5. HYDROCORTISONE BUTYRATE. [Suspect]
     Active Substance: HYDROCORTISONE BUTYRATE
     Indication: AMYOTROPHIC LATERAL SCLEROSIS
     Dosage: 100 MG, OD (8-HOUR CONTINUOUS INFUSION)
     Route: 065
  6. BENZYLPENICILLIN [Concomitant]
     Active Substance: PENICILLIN G
     Indication: AMYOTROPHIC LATERAL SCLEROSIS
     Dosage: 1 MILLION UNITS ON DAY 1; 8-HOUR CONTINUOUS INFUSION
     Route: 065
  7. BENZYLPENICILLIN [Concomitant]
     Active Substance: PENICILLIN G
     Dosage: 5 MILLION UNITS ON DAY 3; 8-HOUR CONTINUOUS INFUSTION
     Route: 065

REACTIONS (2)
  - Blood pressure increased [Recovered/Resolved]
  - Headache [Recovered/Resolved]
